FAERS Safety Report 16235687 (Version 1)
Quarter: 2019Q2

REPORT INFORMATION
  Report Type: Spontaneous
  Country: ES (occurrence: ES)
  Receive Date: 20190424
  Receipt Date: 20190424
  Transmission Date: 20190711
  Serious: Yes (Hospitalization)
  Sender: FDA-Public Use
  Company Number: ES-TEVA-2019-ES-1040943

PATIENT
  Age: 69 Year
  Sex: Female

DRUGS (9)
  1. METAMIZOL (111A) [Suspect]
     Active Substance: METAMIZOL SODIUM
     Indication: PAIN
     Route: 042
     Dates: start: 20190112, end: 20190219
  2. RIFAMPICINA (2273A) [Suspect]
     Active Substance: RIFAMPIN
     Indication: SEPTIC ARTHRITIS STAPHYLOCOCCAL
     Route: 048
     Dates: start: 20190129, end: 20190218
  3. MEROPENEM. [Suspect]
     Active Substance: MEROPENEM
     Indication: SEPTIC ARTHRITIS STAPHYLOCOCCAL
     Route: 042
     Dates: start: 20190124, end: 20190218
  4. TRAMADOL + PARACETAMOL [Concomitant]
     Active Substance: ACETAMINOPHEN\TRAMADOL
     Indication: PAIN
     Route: 065
     Dates: start: 20190115, end: 20190301
  5. OMEPRAZOL (2141A) [Suspect]
     Active Substance: OMEPRAZOLE
     Indication: PROPHYLAXIS AGAINST GASTROINTESTINAL ULCER
     Route: 042
     Dates: start: 20190112, end: 20190221
  6. CEFTAZIDIMA (189A) [Suspect]
     Active Substance: CEFTAZIDIME
     Indication: SEPTIC ARTHRITIS STAPHYLOCOCCAL
     Route: 042
     Dates: start: 20190114, end: 20190124
  7. VANCOMYCINA [Suspect]
     Active Substance: VANCOMYCIN
     Indication: SEPTIC ARTHRITIS STAPHYLOCOCCAL
     Route: 042
     Dates: start: 20190214, end: 20190224
  8. CLOXACILLIN [Suspect]
     Active Substance: CLOXACILLIN
     Indication: SEPTIC ARTHRITIS STAPHYLOCOCCAL
     Route: 042
     Dates: start: 20190124, end: 20190215
  9. BEMIPARINA SODICA (2817SO) [Concomitant]
     Indication: THROMBOSIS PROPHYLAXIS
     Route: 058
     Dates: start: 20190114, end: 20190217

REACTIONS (1)
  - Drug reaction with eosinophilia and systemic symptoms [Recovered/Resolved]

NARRATIVE: CASE EVENT DATE: 20190211
